FAERS Safety Report 4713379-8 (Version None)
Quarter: 2005Q3

REPORT INFORMATION
  Report Type: 
  Country: None (occurrence: None)
  Receive Date: 20050713
  Receipt Date: 20050419
  Transmission Date: 20060218
  Serious: Yes (Other)
  Sender: FDA-Public Use
  Company Number: PHNU2005DE01675

PATIENT
  Age: 16 Year
  Sex: Male
  Weight: 92 kg

DRUGS (5)
  1. LEPONEX / CLOZARIL (CLOZAPINE) [Suspect]
     Indication: PSYCHOTIC DISORDER
     Dosage: 150 MG/DAY
     Route: 048
     Dates: start: 20050317, end: 20050509
  2. RISPERDAL [Suspect]
     Dosage: 6 MG/DAY
     Route: 048
     Dates: end: 20050418
  3. AKINETON /SCH/ [Suspect]
  4. HALDOL [Suspect]
  5. TAVOR [Suspect]

REACTIONS (5)
  - ECHOCARDIOGRAM ABNORMAL [None]
  - FATIGUE [None]
  - HYPERTENSIVE CRISIS [None]
  - VENTRICULAR HYPERTROPHY [None]
  - WEIGHT INCREASED [None]
